FAERS Safety Report 7788656-7 (Version None)
Quarter: 2011Q3

REPORT INFORMATION
  Report Type: 
  Country: None (occurrence: None)
  Receive Date: 20110930
  Receipt Date: 20110926
  Transmission Date: 20111222
  Serious: Yes (Hospitalization)
  Sender: FDA-Public Use
  Company Number: TR-BRISTOL-MYERS SQUIBB COMPANY-16117327

PATIENT
  Age: 27 Week
  Sex: Female
  Weight: 1 kg

DRUGS (2)
  1. AMIKACIN SULFATE [Suspect]
  2. AMPICILLIN SODIUM [Suspect]

REACTIONS (1)
  - CANDIDA SEPSIS [None]
